FAERS Safety Report 21231263 (Version 1)
Quarter: 2022Q3

REPORT INFORMATION
  Report Type: Spontaneous
  Country: US (occurrence: US)
  Receive Date: 20220819
  Receipt Date: 20220819
  Transmission Date: 20221027
  Serious: No
  Sender: FDA-Public Use
  Company Number: US-CIPLA LTD.-2022US02546

PATIENT
  Sex: Male

DRUGS (2)
  1. DICLOFENAC [Suspect]
     Active Substance: DICLOFENAC
     Indication: Ligament rupture
     Dosage: UNK
     Route: 061
     Dates: start: 20220307, end: 20220330
  2. DICLOFENAC [Suspect]
     Active Substance: DICLOFENAC
     Indication: Peripheral swelling

REACTIONS (5)
  - Rash [Not Recovered/Not Resolved]
  - Hypersensitivity [Unknown]
  - Skin disorder [Unknown]
  - Product use in unapproved indication [Not Recovered/Not Resolved]
  - Off label use [Not Recovered/Not Resolved]

NARRATIVE: CASE EVENT DATE: 20220301
